FAERS Safety Report 10768108 (Version 2)
Quarter: 2015Q1

REPORT INFORMATION
  Report Type: Report from Study
  Country: DE (occurrence: DE)
  Receive Date: 20150205
  Receipt Date: 20150213
  Transmission Date: 20150721
  Serious: Yes (Hospitalization, Other)
  Sender: FDA-Public Use
  Company Number: DE-ABBVIE-15P-062-1342500-00

PATIENT
  Age: 75 Year
  Sex: Male

DRUGS (3)
  1. ANTI-ANDROGENS [Concomitant]
     Active Substance: UNSPECIFIED INGREDIENT
     Indication: PRODUCT USED FOR UNKNOWN INDICATION
  2. LUPRON DEPOT [Suspect]
     Active Substance: LEUPROLIDE ACETATE
     Route: 065
     Dates: start: 20140422, end: 20150122
  3. LUPRON DEPOT [Suspect]
     Active Substance: LEUPROLIDE ACETATE
     Indication: PROSTATE CANCER
     Route: 065
     Dates: start: 20120925, end: 20130321

REACTIONS (5)
  - Bladder transitional cell carcinoma [Unknown]
  - Micturition disorder [Unknown]
  - Urethral stenosis [Unknown]
  - Haematuria [Unknown]
  - Phimosis [Unknown]

NARRATIVE: CASE EVENT DATE: 201301
